FAERS Safety Report 9370107 (Version 1)
Quarter: 2013Q2

REPORT INFORMATION
  Report Type: Spontaneous
  Country: GB (occurrence: GB)
  Receive Date: 20130626
  Receipt Date: 20130626
  Transmission Date: 20140414
  Serious: Yes (Hospitalization)
  Sender: FDA-Public Use
  Company Number: GB-ALLERGAN-1309066US

PATIENT
  Age: 90 Year
  Sex: Female

DRUGS (4)
  1. FML [Suspect]
     Indication: HERPES ZOSTER
     Dosage: 1 GTT, TID
     Route: 047
     Dates: start: 20130524, end: 20130529
  2. BECONASE [Concomitant]
  3. CLENIL MODULITE [Concomitant]
  4. HYABAK [Concomitant]

REACTIONS (2)
  - Confusional state [Recovered/Resolved]
  - Hallucination [Recovered/Resolved]
